FAERS Safety Report 5115137-1 (Version None)
Quarter: 2006Q3

REPORT INFORMATION
  Report Type: 
  Country: None (occurrence: None)
  Receive Date: 20060925
  Receipt Date: 20060925
  Transmission Date: 20061208
  Serious: Yes (Other)
  Sender: FDA-Public Use
  Company Number: None

PATIENT
  Age: 65 Year
  Sex: Female
  Weight: 51.2565 kg

DRUGS (1)
  1. PANCREASE (GENERIC) [Suspect]
     Indication: PANCREATITIS
     Dosage: 20 MG  TWICE TID AND TWICE QHS  PO   1-2 WKS
     Route: 048
     Dates: start: 20060801

REACTIONS (2)
  - DIARRHOEA [None]
  - NAUSEA [None]
